FAERS Safety Report 5036186-8 (Version None)
Quarter: 2006Q2

REPORT INFORMATION
  Report Type: 
  Country: None (occurrence: None)
  Receive Date: 20060531
  Receipt Date: 20050916
  Transmission Date: 20061013
  Serious: Yes (Other)
  Sender: FDA-Public Use
  Company Number: 2005087777

PATIENT
  Age: 70 Year
  Sex: Male
  Weight: 79.3795 kg

DRUGS (5)
  1. COLESTIPOL HCL [Suspect]
     Indication: IRRITABLE BOWEL SYNDROME
     Dosage: (1 GRAM, TWICE DAILY OR MORE AS NEEDED), ORAL
     Route: 048
  2. HYZAAR [Concomitant]
  3. PENTOXIFYLLINE (PENTOXYFYLLINE) [Concomitant]
  4. LIPITOR [Concomitant]
  5. XALATAN [Concomitant]

REACTIONS (1)
  - DEPRESSION [None]
